FAERS Safety Report 13230769 (Version 1)
Quarter: 2017Q1

REPORT INFORMATION
  Report Type: Report from Study
  Country: US (occurrence: US)
  Receive Date: 20170214
  Receipt Date: 20170214
  Transmission Date: 20170428
  Serious: Yes (Other)
  Sender: FDA-Public Use
  Company Number: US-GILEAD-2017-0252714

PATIENT
  Age: 73 Year
  Sex: Female

DRUGS (13)
  1. COQ 10 [Concomitant]
     Active Substance: UBIDECARENONE
  2. OMEGA 3 FISH OIL                   /01334101/ [Concomitant]
     Active Substance: FISH OIL
  3. LEVOTHYROXIN [Concomitant]
     Active Substance: LEVOTHYROXINE
  4. SYSTANE (HYPROMELLOSE 2910 (4000 MPA.S)) [Concomitant]
     Active Substance: HYPROMELLOSE 2910 (4000 MPA.S)
  5. LATANOPROST. [Concomitant]
     Active Substance: LATANOPROST
  6. AMBRISENTAN [Suspect]
     Active Substance: AMBRISENTAN
     Indication: PULMONARY HYPERTENSION
     Dosage: 10 MG, QD
     Route: 065
     Dates: start: 20110505
  7. RESTASIS [Concomitant]
     Active Substance: CYCLOSPORINE
  8. SEREVENT N [Concomitant]
  9. REFRESH PLUS [Concomitant]
     Active Substance: CARBOXYMETHYLCELLULOSE SODIUM
  10. REFRESH LACRI LUBE [Concomitant]
  11. VITAMIN D3 [Concomitant]
     Active Substance: CHOLECALCIFEROL
  12. GLUCOSAMINE [Concomitant]
     Active Substance: GLUCOSAMINE
  13. DILTIAZEM. [Concomitant]
     Active Substance: DILTIAZEM

REACTIONS (3)
  - Memory impairment [Unknown]
  - Emotional distress [Unknown]
  - CREST syndrome [Not Recovered/Not Resolved]
